FAERS Safety Report 10301989 (Version 1)
Quarter: 2014Q3

REPORT INFORMATION
  Report Type: Spontaneous
  Country: US (occurrence: US)
  Receive Date: 20140714
  Receipt Date: 20140714
  Transmission Date: 20150326
  Serious: Yes (Other)
  Sender: FDA-Public Use
  Company Number: US-ELI_LILLY_AND_COMPANY-US201407001124

PATIENT
  Sex: Male

DRUGS (3)
  1. METFORMIN [Concomitant]
     Active Substance: METFORMIN HYDROCHLORIDE
  2. HUMALOG [Suspect]
     Active Substance: INSULIN LISPRO
     Indication: TYPE 1 DIABETES MELLITUS
     Dosage: UNK
     Route: 058
  3. CRESTOR [Concomitant]
     Active Substance: ROSUVASTATIN CALCIUM

REACTIONS (11)
  - Blood glucose increased [Unknown]
  - Blister [Unknown]
  - Blood pressure decreased [Unknown]
  - Arthralgia [Unknown]
  - Infusion site scab [Unknown]
  - Myalgia [Unknown]
  - Infusion site pruritus [Unknown]
  - Drug ineffective [Unknown]
  - Blood pressure increased [Unknown]
  - Dizziness [Unknown]
  - Infusion site erythema [Unknown]
